FAERS Safety Report 10190906 (Version 2)
Quarter: 2014Q2

REPORT INFORMATION
  Report Type: Spontaneous
  Country: JP (occurrence: JP)
  Receive Date: 20140523
  Receipt Date: 20140523
  Transmission Date: 20141212
  Serious: Yes (Other)
  Sender: FDA-Public Use
  Company Number: JP-RANBAXY-2014RR-81031

PATIENT
  Age: 22 Year
  Sex: Male

DRUGS (9)
  1. PAROXETINE [Suspect]
     Indication: MAJOR DEPRESSION
     Dosage: MAXIMAL DOSE 20 MG/DAY
     Route: 065
  2. LORAZEPAM [Suspect]
     Indication: MAJOR DEPRESSION
     Dosage: MAXIMAL DOSE 1 MG/DAY
     Route: 065
  3. LITHIUM [Suspect]
     Indication: MANIA
     Dosage: MAXIMAL DOSE 600 MG/DAY
     Route: 065
  4. RISPERIDONE [Suspect]
     Indication: MANIA
     Dosage: MAXIMAL DOSE 4 MG/DAY
     Route: 065
  5. ZOTEPINE [Suspect]
     Indication: MANIA
     Dosage: MAXIMAL DOSE 150 MG/DAY
     Route: 065
  6. ZOPICLONE [Concomitant]
     Indication: PRODUCT USED FOR UNKNOWN INDICATION
     Dosage: MAXIMAL DOSE 7.5 MG/DAY
     Route: 065
  7. BIPERIDEN [Concomitant]
     Indication: PRODUCT USED FOR UNKNOWN INDICATION
     Dosage: MAXIMAL DOSE 2 MG/DAY
     Route: 065
  8. FLUNITRAZEPAM [Concomitant]
     Indication: PRODUCT USED FOR UNKNOWN INDICATION
     Dosage: MAXIMAL DOSE 2 MG/DAY
     Route: 065
  9. FLUNITRAZEPAM [Concomitant]
     Indication: PRODUCT USED FOR UNKNOWN INDICATION
     Dosage: MAXIMAL DOSE 1 MG/DAY
     Route: 065

REACTIONS (2)
  - Mania [Recovered/Resolved]
  - Extrapyramidal disorder [Unknown]
